FAERS Safety Report 15997425 (Version 2)
Quarter: 2019Q2

REPORT INFORMATION
  Report Type: Spontaneous
  Country: PL (occurrence: PL)
  Receive Date: 20190222
  Receipt Date: 20190516
  Transmission Date: 20190711
  Serious: Yes (Death)
  Sender: FDA-Public Use
  Company Number: PL-REGENERON PHARMACEUTICALS, INC.-2019-18063

PATIENT

DRUGS (1)
  1. EYLEA [Suspect]
     Active Substance: AFLIBERCEPT
     Indication: NEOVASCULAR AGE-RELATED MACULAR DEGENERATION
     Dosage: TOTAL OF 6 EYLEA INJECTIONS, LAST INJECTION ON 27-JUN-2017, IN THE FIRST YEAR OF TREATMENT: ONE INJE
     Route: 031
     Dates: start: 20160202, end: 20170627

REACTIONS (1)
  - Cardiac failure [Fatal]
